FAERS Safety Report 7726638-1 (Version None)
Quarter: 2011Q3

REPORT INFORMATION
  Report Type: 
  Country: None (occurrence: None)
  Receive Date: 20110902
  Receipt Date: 20110825
  Transmission Date: 20111222
  Serious: Yes (Disabling)
  Sender: FDA-Public Use
  Company Number: PHEH2011US01718

PATIENT
  Sex: Female

DRUGS (5)
  1. SIMVASTATIN [Concomitant]
     Indication: HYPERLIPIDAEMIA
     Dosage: UNK UKN, UNK
     Route: 048
     Dates: start: 20101101
  2. RECLAST [Suspect]
     Indication: OSTEOPOROSIS
     Dosage: 5 MG, YEARLY
     Route: 042
     Dates: start: 20110729
  3. FOSINOPRIL SODIUM [Concomitant]
     Dosage: UNK UKN, UNK
     Dates: start: 20110501
  4. PRILOSEC [Concomitant]
     Indication: GASTROOESOPHAGEAL REFLUX DISEASE
     Dosage: UNK UKN, UNK
     Route: 048
     Dates: start: 20110501
  5. ARICEPT [Concomitant]
     Indication: DEMENTIA
     Route: 048

REACTIONS (1)
  - HERPES ZOSTER [None]
